FAERS Safety Report 9563425 (Version 2)
Quarter: 2014Q1

REPORT INFORMATION
  Report Type: Spontaneous
  Country: GB (occurrence: None)
  Receive Date: 20130926
  Receipt Date: 20140129
  Transmission Date: 20141002
  Serious: Yes (Life-Threatening, Hospitalization, Disabling, Other)
  Sender: FDA-Public Use
  Company Number: AUR-APL-2013-07909

PATIENT
  Age: 77 Year
  Sex: Male
  Weight: 92.7 kg

DRUGS (6)
  1. TERBINAFINE (TERBINAFINE) [Suspect]
     Indication: ONYCHOMYCOSIS
     Route: 048
     Dates: start: 20130806, end: 20130819
  2. FLUCLOXACILLIN (FLUCLOXACILLIN) [Suspect]
     Indication: PRODUCT USED FOR UNKNOWN INDICATION
     Dates: start: 20130819
  3. PENICILLIN V [Suspect]
     Indication: PRODUCT USED FOR UNKNOWN INDICATION
     Dates: start: 20130819
  4. ATORVASTATIN (ATORVASTATIN) [Concomitant]
  5. CLOPIDOREL (CLOPIDOGREL) [Concomitant]
  6. METFORMIN (METFORMIN) [Concomitant]

REACTIONS (9)
  - Renal failure acute [None]
  - Arthralgia [None]
  - Dermatitis exfoliative [None]
  - Psoriasis [None]
  - Erythema [None]
  - Rash [None]
  - Dermatitis exfoliative [None]
  - Renal impairment [None]
  - Local swelling [None]
